FAERS Safety Report 10307548 (Version 5)
Quarter: 2016Q3

REPORT INFORMATION
  Report Type: Report from Study
  Country: CN (occurrence: CN)
  Receive Date: 20140716
  Receipt Date: 20160719
  Transmission Date: 20161109
  Serious: Yes (Hospitalization, Disabling)
  Sender: FDA-Public Use
  Company Number: CN-ASTELLAS-2014JP013871

PATIENT
  Age: 19 Year
  Sex: Male
  Weight: 55 kg

DRUGS (10)
  1. YIBI^AO [Concomitant]
     Indication: ANAEMIA
     Dosage: 6000 U, TWICE WEEKLY
     Route: 042
     Dates: start: 20140521
  2. ATG-FRESENIUS [Suspect]
     Active Substance: LAPINE T-LYMPHOCYTE IMMUNE GLOBULIN
     Indication: IMMUNOSUPPRESSION
     Route: 042
     Dates: start: 20140415, end: 20140415
  3. CELLCEPT [Suspect]
     Active Substance: MYCOPHENOLATE MOFETIL\MYCOPHENOLATE MOFETIL HYDROCHLORIDE
     Indication: PROPHYLAXIS AGAINST TRANSPLANT REJECTION
     Dosage: 0.75 MG, ONCE DAILY
     Route: 048
     Dates: start: 20140416
  4. BETALOC                            /00376902/ [Concomitant]
     Active Substance: METOPROLOL TARTRATE
     Indication: HYPERTENSION
     Route: 048
     Dates: start: 20140526
  5. TACROLIMUS. [Suspect]
     Active Substance: TACROLIMUS
     Indication: PROPHYLAXIS AGAINST TRANSPLANT REJECTION
     Route: 048
     Dates: start: 20140415
  6. SULFAMETHOXAZOLE [Concomitant]
     Active Substance: SULFAMETHOXAZOLE
     Indication: ANTIFUNGAL PROPHYLAXIS
     Dosage: 0.12 G, ONCE DAILY
     Route: 048
     Dates: start: 20140701, end: 20140703
  7. GANCICLOVIR. [Concomitant]
     Active Substance: GANCICLOVIR
     Indication: ANTIVIRAL PROPHYLAXIS
     Route: 048
     Dates: start: 20140509
  8. NORVASC [Concomitant]
     Active Substance: AMLODIPINE BESYLATE
     Indication: HYPERTENSION
     Route: 048
     Dates: start: 20140428
  9. LEUCOGEN [Concomitant]
     Active Substance: LEUCOGEN
     Indication: ANAEMIA
     Route: 048
     Dates: start: 20140702
  10. METOPROLOL. [Concomitant]
     Active Substance: METOPROLOL
     Indication: HYPERTENSION
     Route: 048
     Dates: start: 20140701, end: 20140703

REACTIONS (1)
  - Renal vein thrombosis [Unknown]

NARRATIVE: CASE EVENT DATE: 20140703
